FAERS Safety Report 16375015 (Version 1)
Quarter: 2019Q2

REPORT INFORMATION
  Report Type: Report from Study
  Country: US (occurrence: US)
  Receive Date: 20190531
  Receipt Date: 20190531
  Transmission Date: 20190711
  Serious: Yes (Death, Other)
  Sender: FDA-Public Use
  Company Number: US-REGENERON PHARMACEUTICALS, INC.-2019-33833

PATIENT

DRUGS (1)
  1. EYLEA [Suspect]
     Active Substance: AFLIBERCEPT
     Indication: DEMENTIA ALZHEIMER^S TYPE
     Dosage: 2 MG/ 0.05ML, EVERY 4-6 WEEKS, LEFT EYE
     Route: 031

REACTIONS (2)
  - Death [Fatal]
  - Off label use [Unknown]
